FAERS Safety Report 8572320-0 (Version None)
Quarter: 2012Q2

REPORT INFORMATION
  Report Type: 
  Country: None (occurrence: None)
  Receive Date: 20120423
  Receipt Date: 20090828
  Transmission Date: 20120825
  Serious: Yes (Other)
  Sender: FDA-Public Use
  Company Number: PHEH2009US10080

PATIENT
  Age: 35 Year
  Sex: Female

DRUGS (2)
  1. EXJADE [Suspect]
     Indication: IRON OVERLOAD
     Dosage: 1500 MG DAILY, ORAL
     Route: 048
     Dates: start: 20060901
  2. EXJADE [Suspect]
     Indication: APLASTIC ANAEMIA
     Dosage: 1500 MG DAILY, ORAL
     Route: 048
     Dates: start: 20060901

REACTIONS (4)
  - ABDOMINAL PAIN UPPER [None]
  - GASTROINTESTINAL HAEMORRHAGE [None]
  - ULCER [None]
  - NAUSEA [None]
